FAERS Safety Report 11795106 (Version 1)
Quarter: 2020Q3

REPORT INFORMATION
  Report Type: Report from Study
  Country: US (occurrence: US)
  Receive Date: 20151202
  Receipt Date: 20151202
  Transmission Date: 20201104
  Serious: Yes (Hospitalization)
  Sender: FDA-Public Use
  Company Number: US-JNJFOC-20151108432

PATIENT
  Age: 41 Year
  Sex: Male
  Weight: 61.8 kg

DRUGS (19)
  1. BENADRYL [Concomitant]
     Active Substance: DIPHENHYDRAMINE HYDROCHLORIDE
     Indication: INFUSION RELATED REACTION
     Dosage: ONCE
     Route: 042
     Dates: start: 20151027, end: 20151027
  2. DEMEROL [Concomitant]
     Active Substance: MEPERIDINE HYDROCHLORIDE
     Indication: INFUSION RELATED REACTION
     Dosage: TWICE
     Route: 042
     Dates: start: 20151027, end: 20151027
  3. SOLU?MEDROL [Concomitant]
     Active Substance: METHYLPREDNISOLONE SODIUM SUCCINATE
     Indication: INFUSION RELATED REACTION
     Dosage: ONCE
     Route: 042
     Dates: start: 20151027, end: 20151027
  4. ZOVIRAX [Concomitant]
     Active Substance: ACYCLOVIR
     Route: 048
     Dates: start: 20150520
  5. NASONEX [Concomitant]
     Active Substance: MOMETASONE FUROATE
     Dosage: 50 MCG/ ACTUATION NASAL SPRAY; 2 SPRAY DAILY
     Route: 045
  6. IMODIUM [Concomitant]
     Active Substance: LOPERAMIDE HYDROCHLORIDE
     Route: 048
  7. OXYCODONE [Concomitant]
     Active Substance: OXYCODONE
     Dosage: EVERY FOUR HOURS AS NEEDED; FOR 1 MONTH
     Route: 048
     Dates: start: 20151027
  8. PERI?COLACE [Concomitant]
     Active Substance: CASANTHRANOL\DOCUSATE SODIUM
     Dosage: 8.6?50 MG; FOR ALMOST 13 MONTHS
     Route: 048
     Dates: start: 20150330
  9. DARATUMUMAB [Suspect]
     Active Substance: DARATUMUMAB
     Indication: PLASMA CELL MYELOMA
     Route: 042
     Dates: start: 20151027
  10. ROBITUSSIN (GUAIFENESIN) [Concomitant]
     Active Substance: GUAIFENESIN
     Indication: COUGH
     Dosage: 100 MG/ 5 ML
     Route: 048
     Dates: start: 20150420
  11. SLOW?MAG [Concomitant]
     Active Substance: MAGNESIUM CHLORIDE
     Dosage: 71.5?119 MG
     Route: 048
  12. PEPCID [Concomitant]
     Active Substance: FAMOTIDINE
     Indication: INFUSION RELATED REACTION
     Dosage: ONCE
     Route: 042
     Dates: start: 20151027, end: 20151027
  13. MS CONTIN [Concomitant]
     Active Substance: MORPHINE SULFATE
     Route: 048
     Dates: start: 20151027
  14. OMEPRAZOLE. [Concomitant]
     Active Substance: OMEPRAZOLE
     Route: 048
     Dates: start: 20151007, end: 20151106
  15. DARATUMUMAB [Suspect]
     Active Substance: DARATUMUMAB
     Route: 042
  16. NORMAL SALINE [Concomitant]
     Active Substance: SODIUM CHLORIDE
     Dates: start: 20151027
  17. PANOBINOSTAT [Concomitant]
     Active Substance: PANOBINOSTAT
     Dosage: EVERY FOUR HOURS AS NEEDED
     Route: 048
     Dates: start: 20150904
  18. ZOFRAN [Concomitant]
     Active Substance: ONDANSETRON HYDROCHLORIDE
     Route: 048
     Dates: start: 20151102
  19. NEURONTIN [Concomitant]
     Active Substance: GABAPENTIN
     Dosage: FOR ALMOST 13 MONTHS
     Route: 048
     Dates: start: 20150709

REACTIONS (7)
  - Anaemia [Recovered/Resolved]
  - Thrombocytopenia [Recovered/Resolved]
  - Chest pain [Unknown]
  - Diarrhoea [Unknown]
  - Pancytopenia [Recovered/Resolved]
  - Leukopenia [Recovered/Resolved]
  - Haematuria [Unknown]

NARRATIVE: CASE EVENT DATE: 20151105
